FAERS Safety Report 10335527 (Version 1)
Quarter: 2014Q3

REPORT INFORMATION
  Report Type: Spontaneous
  Country: US (occurrence: None)
  Receive Date: 20140722
  Receipt Date: 20140722
  Transmission Date: 20150326
  Serious: Yes (Disabling, Other)
  Sender: FDA-Public Use
  Company Number: None

PATIENT
  Age: 29 Year
  Sex: Male
  Weight: 100.7 kg

DRUGS (1)
  1. NICODERM CQ [Suspect]
     Active Substance: NICOTINE
     Indication: PRODUCT USED FOR UNKNOWN INDICATION
     Dosage: 14 MG  ONCE DAILY  APPLIED AS MEDICATED PATCH TO SKIN
     Dates: start: 20140719, end: 20140720

REACTIONS (5)
  - Hypersomnia [None]
  - Abnormal behaviour [None]
  - Dysarthria [None]
  - Gait disturbance [None]
  - Feeling drunk [None]

NARRATIVE: CASE EVENT DATE: 20140719
